FAERS Safety Report 6357028-4 (Version None)
Quarter: 2009Q3

REPORT INFORMATION
  Report Type: 
  Country: None (occurrence: None)
  Receive Date: 20090915
  Receipt Date: 20090603
  Transmission Date: 20100115
  Serious: No
  Sender: FDA-Public Use
  Company Number: US-ABBOTT-09P-163-0578347-00

PATIENT
  Sex: Female
  Weight: 12 kg

DRUGS (2)
  1. DEPAKOTE [Suspect]
     Indication: CONVULSION
     Dosage: UNKNOWN DOSES, DOSAGES CHANGES OFTEN, AND PATIENT WAS WEANED OFF OF MEDICATION
     Route: 048
     Dates: start: 20090108, end: 20090401
  2. TOPAMAX SPRINKLE [Suspect]
     Indication: CONVULSION
     Dosage: TAKES 4 CAPSULES IN AM AND 4 IN PM
     Dates: start: 20090401

REACTIONS (2)
  - ALOPECIA [None]
  - TREMOR [None]
